FAERS Safety Report 6654329-7 (Version None)
Quarter: 2010Q1

REPORT INFORMATION
  Report Type: 
  Country: None (occurrence: None)
  Receive Date: 20100326
  Receipt Date: 20100322
  Transmission Date: 20100710
  Serious: Yes (Death)
  Sender: FDA-Public Use
  Company Number: US-WATSON-2010-03700

PATIENT
  Age: 74 Year
  Sex: Male

DRUGS (9)
  1. HYDRALAZINE (WATSON LABORATORIES) [Suspect]
     Indication: DRUG USE FOR UNKNOWN INDICATION
  2. HYDROCODONE BITARTRATE AND ACETAMINOPHEN [Suspect]
     Indication: DRUG USE FOR UNKNOWN INDICATION
  3. METOPROLOL (WATSON LABORATORIES) [Suspect]
     Indication: DRUG USE FOR UNKNOWN INDICATION
  4. SERTRALINE HYDROCHLORIDE [Suspect]
     Indication: DRUG USE FOR UNKNOWN INDICATION
  5. BENZODIAZEPINE DERIVATIVES [Suspect]
     Indication: DRUG USE FOR UNKNOWN INDICATION
  6. RANOLAZINE [Suspect]
     Indication: DRUG USE FOR UNKNOWN INDICATION
  7. ANGIOTENSIN-CONVERTING ENZYME INHIBITOR [Suspect]
     Indication: DRUG USE FOR UNKNOWN INDICATION
  8. NITROGLYCERIN [Suspect]
     Indication: DRUG USE FOR UNKNOWN INDICATION
  9. CARDIAC GLYCOSIDES [Suspect]

REACTIONS (1)
  - DEATH [None]
